FAERS Safety Report 4724450-9 (Version None)
Quarter: 2005Q3

REPORT INFORMATION
  Report Type: 
  Country: None (occurrence: None)
  Receive Date: 20050721
  Receipt Date: 20050706
  Transmission Date: 20060218
  Serious: Yes (Hospitalization)
  Sender: FDA-Public Use
  Company Number: 216059

PATIENT
  Age: 51 Year
  Sex: Female

DRUGS (6)
  1. HERCEPTIN [Suspect]
     Indication: BREAST CANCER METASTATIC
     Dosage: SEE IMAGE
     Route: 042
     Dates: start: 20050621, end: 20050621
  2. HERCEPTIN [Suspect]
     Indication: BREAST CANCER METASTATIC
     Dosage: SEE IMAGE
     Route: 042
     Dates: start: 20050628
  3. VINFLUNNIE (VINFLUNNIE) [Suspect]
     Indication: BREAST CANCER METASTATIC
     Dosage: 550 MG, Q3W, INTRAVENOUS
     Route: 042
     Dates: start: 20050621
  4. LISINOPRIL [Concomitant]
  5. LITCAN (ALIZAPRIDE HYDROCHLORIDE) [Concomitant]
  6. FORLAX (POLYETHYLENE GLYCOL, POTASSIUM NOS, SODIUM BICARBONATE, SODIUM [Concomitant]

REACTIONS (2)
  - ABDOMINAL PAIN [None]
  - CONSTIPATION [None]
